FAERS Safety Report 5422564-1 (Version None)
Quarter: 2007Q3

REPORT INFORMATION
  Report Type: 
  Country: None (occurrence: None)
  Receive Date: 20070822
  Receipt Date: 20070813
  Transmission Date: 20080115
  Serious: Yes (Hospitalization, Other)
  Sender: FDA-Public Use
  Company Number: JP-BRISTOL-MYERS SQUIBB COMPANY-13870134

PATIENT
  Age: 11 Year
  Sex: Female

DRUGS (3)
  1. ARIPIPRAZOLE [Suspect]
     Dosage: ARIPIPRAZOLE-3MG,ORAL,04-OCT-2006 TO 12-NOV-2006,40DAYS. + INCREASED TO 4.5MG AND FINALLY DISCONTD.
     Route: 048
     Dates: start: 20061113, end: 20070216
  2. CARBAMAZEPINE [Concomitant]
     Route: 048
     Dates: start: 19980303
  3. VALPROATE SODIUM [Concomitant]
     Dosage: DRUG WAS ALSO TAKEN FROM UNKNOWN TO 23-JAN-2007 ,400 MG, ORAL.
     Route: 048
     Dates: end: 20070123

REACTIONS (1)
  - ELECTROENCEPHALOGRAM ABNORMAL [None]
